FAERS Safety Report 5706755-8 (Version None)
Quarter: 2008Q2

REPORT INFORMATION
  Report Type: 
  Country: None (occurrence: None)
  Receive Date: 20080415
  Receipt Date: 20080415
  Transmission Date: 20081010
  Serious: Yes (Other)
  Sender: FDA-Public Use
  Company Number: None

PATIENT
  Age: 7 Year
  Sex: Male
  Weight: 23.587 kg

DRUGS (2)
  1. SINGULAIR [Suspect]
     Indication: ASTHMA
     Dosage: SINGLE DOSE DAILY PO
     Route: 048
     Dates: start: 20040101, end: 20080414
  2. SINGULAIR [Suspect]
     Indication: HYPERSENSITIVITY
     Dosage: SINGLE DOSE DAILY PO
     Route: 048
     Dates: start: 20040101, end: 20080414

REACTIONS (8)
  - AFFECTIVE DISORDER [None]
  - ANXIETY [None]
  - BIPOLAR DISORDER [None]
  - CRYING [None]
  - FLIGHT OF IDEAS [None]
  - INSOMNIA [None]
  - OBSESSIVE-COMPULSIVE DISORDER [None]
  - SOCIAL PROBLEM [None]
